FAERS Safety Report 7767381-2 (Version None)
Quarter: 2011Q3

REPORT INFORMATION
  Report Type: 
  Country: None (occurrence: None)
  Receive Date: 20110922
  Receipt Date: 20100902
  Transmission Date: 20111222
  Serious: No
  Sender: FDA-Public Use
  Company Number: US-ASTRAZENECA-2007UW08827

PATIENT
  Age: 15715 Day
  Sex: Male
  Weight: 108.4 kg

DRUGS (16)
  1. SEROQUEL [Suspect]
     Indication: BIPOLAR DISORDER
     Dosage: 25-400 MG
     Route: 048
     Dates: start: 20000907
  2. RISPERDAL [Concomitant]
     Indication: SCHIZOPHRENIA
     Dates: start: 19950101, end: 19960101
  3. TRICOR [Concomitant]
  4. COMBIVENT [Concomitant]
  5. THORAZINE [Concomitant]
  6. TRAZODONE HYDROCHLORIDE [Concomitant]
  7. SEROQUEL [Suspect]
     Dosage: 25-800 MG
     Route: 048
     Dates: start: 20001024
  8. SINGULAIR [Concomitant]
  9. DEPAKOTE [Concomitant]
  10. ZOLOFT [Concomitant]
  11. TRILAFON [Concomitant]
  12. REMERON [Concomitant]
  13. ZYPREXA [Concomitant]
     Indication: SCHIZOPHRENIA
     Dates: start: 19970721, end: 19991030
  14. TRIAVIL [Concomitant]
  15. LUVOX [Concomitant]
  16. RISPERDAL [Concomitant]
     Dates: start: 19990514, end: 20000526

REACTIONS (11)
  - LIPOMA [None]
  - TYPE 2 DIABETES MELLITUS [None]
  - SCHIZOPHRENIA [None]
  - DIABETES MELLITUS [None]
  - ABDOMINAL HERNIA [None]
  - PSYCHOTIC DISORDER [None]
  - TOBACCO ABUSE [None]
  - OBESITY [None]
  - BLOOD TRIGLYCERIDES INCREASED [None]
  - UMBILICAL HERNIA [None]
  - ALCOHOL ABUSE [None]
